FAERS Safety Report 20353409 (Version 1)
Quarter: 2022Q1

REPORT INFORMATION
  Report Type: Spontaneous
  Country: CN (occurrence: CN)
  Receive Date: 20220119
  Receipt Date: 20220119
  Transmission Date: 20220424
  Serious: Yes (Death)
  Sender: FDA-Public Use
  Company Number: CN-BEH-2022140666

PATIENT
  Age: 89 Year
  Sex: Male

DRUGS (6)
  1. ALBUMIN HUMAN [Suspect]
     Active Substance: ALBUMIN HUMAN
     Indication: Supportive care
     Route: 065
  2. FENTANYL [Suspect]
     Active Substance: FENTANYL
     Indication: Supportive care
     Route: 062
  3. INDOMETHACIN [Suspect]
     Active Substance: INDOMETHACIN
     Indication: Supportive care
     Dosage: UNK SUPPOSITORIES
     Route: 065
  4. TORSEMIDE [Suspect]
     Active Substance: TORSEMIDE
     Indication: Supportive care
     Route: 065
  5. DOPAMINE [Suspect]
     Active Substance: DOPAMINE HYDROCHLORIDE
     Indication: Supportive care
     Route: 065
  6. DESLANOSIDE [Suspect]
     Active Substance: DESLANOSIDE
     Indication: Supportive care
     Route: 065

REACTIONS (1)
  - Drug ineffective [Fatal]
